FAERS Safety Report 15051428 (Version 1)
Quarter: 2018Q2

REPORT INFORMATION
  Report Type: Spontaneous
  Country: ES (occurrence: ES)
  Receive Date: 20180622
  Receipt Date: 20180622
  Transmission Date: 20180711
  Serious: Yes (Death, Hospitalization, Other)
  Sender: FDA-Public Use
  Company Number: ES-PFIZER INC-2018251540

PATIENT
  Age: 75 Year
  Sex: Male

DRUGS (1)
  1. DOXORUBICIN HCL [Suspect]
     Active Substance: DOXORUBICIN HYDROCHLORIDE
     Indication: HEPATIC CANCER
     Dosage: UNK
     Route: 013
     Dates: start: 20170712, end: 20170712

REACTIONS (3)
  - Hepatorenal syndrome [Fatal]
  - Ascites [Fatal]
  - Peritonitis bacterial [Fatal]

NARRATIVE: CASE EVENT DATE: 20170725
